FAERS Safety Report 9395928 (Version 1)
Quarter: 2013Q3

REPORT INFORMATION
  Report Type: Spontaneous
  Country: US (occurrence: US)
  Receive Date: 20130711
  Receipt Date: 20130711
  Transmission Date: 20140515
  Serious: Yes (Hospitalization)
  Sender: FDA-Public Use
  Company Number: US-BAYER-2013-084102

PATIENT
  Age: 29 Year
  Sex: Female
  Weight: 61.68 kg

DRUGS (12)
  1. YASMIN [Suspect]
     Indication: ACNE
     Dosage: UNK
     Dates: start: 2010, end: 2012
  2. YASMIN [Suspect]
     Indication: PREMENSTRUAL DYSPHORIC DISORDER
  3. YASMIN [Suspect]
     Indication: PREMENSTRUAL SYNDROME
  4. VITAMIN C [Concomitant]
     Dosage: UNK
     Dates: start: 2012
  5. LEXAPRO [Concomitant]
     Indication: ANXIETY
     Dosage: UNK
     Dates: start: 2009, end: 2012
  6. LIBRAX [Concomitant]
     Indication: IRRITABLE BOWEL SYNDROME
     Dosage: UNK
     Dates: start: 2003, end: 2005
  7. CYCLOBENZAPRINE [Concomitant]
     Dosage: 10 MG, UNK
  8. NAPROXEN [Concomitant]
     Dosage: 500 MG, UNK
     Dates: start: 201210
  9. AZITHROMYCIN [Concomitant]
     Dosage: 500 MG, UNK
     Dates: start: 20121004
  10. VENTOLIN HFA [Concomitant]
     Dosage: 90 MCG/L, UNK
     Dates: start: 20121004
  11. PREDNISONE [Concomitant]
     Dosage: 10 MG, UNK
     Dates: start: 20121006
  12. MONTELUKAST SODIUM [Concomitant]
     Dosage: 10 MG, UNK
     Dates: start: 20121006

REACTIONS (10)
  - Deep vein thrombosis [None]
  - Pulmonary embolism [None]
  - Pulmonary infarction [None]
  - Lung disorder [None]
  - Local swelling [None]
  - Hypoaesthesia [None]
  - Skin discolouration [None]
  - Limb immobilisation [None]
  - Total lung capacity decreased [None]
  - Dyspnoea [None]
